FAERS Safety Report 13840768 (Version 4)
Quarter: 2017Q4

REPORT INFORMATION
  Report Type: Report from Study
  Country: US (occurrence: US)
  Receive Date: 20170807
  Receipt Date: 20171012
  Transmission Date: 20180320
  Serious: Yes (Hospitalization, Other)
  Sender: FDA-Public Use
  Company Number: US-PFIZER INC-2017269019

PATIENT
  Age: 59 Year
  Sex: Female

DRUGS (3)
  1. IBRANCE [Suspect]
     Active Substance: PALBOCICLIB
     Indication: BREAST CANCER METASTATIC
     Dosage: 125 MG, CYCLIC (DAILY X21, HOLD 7 DAYS, REPEAT)
     Route: 048
     Dates: start: 20170616, end: 2017
  2. FASLODEX [Concomitant]
     Active Substance: FULVESTRANT
     Dosage: UNK
     Dates: start: 20170612
  3. IBRANCE [Suspect]
     Active Substance: PALBOCICLIB
     Dosage: 125 MG, CYCLIC (DAILY X21, HOLD 7 DAYS, REPEAT)
     Route: 048
     Dates: start: 2017

REACTIONS (10)
  - Cerebrovascular accident [Recovered/Resolved]
  - Platelet count decreased [Recovering/Resolving]
  - Sinusitis [Unknown]
  - White blood cell count decreased [Recovering/Resolving]
  - Neutrophil count decreased [Unknown]
  - Fatigue [Unknown]
  - Constipation [Unknown]
  - Full blood count decreased [Unknown]
  - Bronchitis [Unknown]
  - Neoplasm progression [Not Recovered/Not Resolved]

NARRATIVE: CASE EVENT DATE: 2017
